FAERS Safety Report 19418005 (Version 3)
Quarter: 2021Q3

REPORT INFORMATION
  Report Type: Report from Study
  Country: US (occurrence: US)
  Receive Date: 20210615
  Receipt Date: 20210904
  Transmission Date: 20211014
  Serious: No
  Sender: FDA-Public Use
  Company Number: NVSC2021US134938

PATIENT
  Sex: Female

DRUGS (1)
  1. COSENTYX [Suspect]
     Active Substance: SECUKINUMAB
     Indication: PSORIASIS
     Dosage: 300 MG (ONCE A WEEK FOR 5 WEEKS AND THEN Q4) (BENEATH THE SKIN,USUALLY VIA INJECTION)
     Route: 058

REACTIONS (2)
  - Bronchitis [Unknown]
  - Drug ineffective [Unknown]
